FAERS Safety Report 8484048-6 (Version None)
Quarter: 2012Q3

REPORT INFORMATION
  Report Type: 
  Country: None (occurrence: None)
  Receive Date: 20120703
  Receipt Date: 20120627
  Transmission Date: 20120928
  Serious: Yes (Other)
  Sender: FDA-Public Use
  Company Number: US-BAYER-2011-049536

PATIENT
  Age: 26 Year
  Sex: Female
  Weight: 77 kg

DRUGS (4)
  1. YAZ [Suspect]
     Indication: CONTRACEPTION
     Dosage: UNK, QD
     Route: 048
     Dates: start: 20100101, end: 20100501
  2. LAMICTAL [Concomitant]
     Indication: CONVULSION
     Route: 048
  3. CEFUROXIME AXETIL [Concomitant]
     Dosage: 250 MG, UNK
     Route: 048
     Dates: start: 20100412
  4. YAZ [Suspect]
     Indication: ACNE

REACTIONS (2)
  - DEEP VEIN THROMBOSIS [None]
  - INJURY [None]
